FAERS Safety Report 6742358-4 (Version None)
Quarter: 2010Q2

REPORT INFORMATION
  Report Type: 
  Country: None (occurrence: None)
  Receive Date: 20100524
  Receipt Date: 20100510
  Transmission Date: 20101027
  Serious: Yes (Hospitalization)
  Sender: FDA-Public Use
  Company Number: 012018

PATIENT
  Sex: Male
  Weight: 90 kg

DRUGS (2)
  1. CIMZIA [Suspect]
     Indication: RHEUMATOID ARTHRITIS
     Dosage: SUBCUTANEOUS
     Route: 058
     Dates: start: 20100316
  2. METHOTREXATE [Concomitant]

REACTIONS (2)
  - ERYTHEMA MULTIFORME [None]
  - ORAL HERPES [None]
